FAERS Safety Report 6872920-X (Version None)
Quarter: 2010Q3

REPORT INFORMATION
  Report Type: 
  Country: None (occurrence: None)
  Receive Date: 20100723
  Receipt Date: 20081110
  Transmission Date: 20110219
  Serious: No
  Sender: FDA-Public Use
  Company Number: US-PFIZER INC-2008095595

PATIENT
  Sex: Female
  Weight: 52.16 kg

DRUGS (2)
  1. CHANTIX [Suspect]
     Indication: SMOKING CESSATION THERAPY
     Dates: start: 20081001
  2. ANTIBIOTICS [Concomitant]

REACTIONS (9)
  - ABDOMINAL PAIN UPPER [None]
  - ABNORMAL DREAMS [None]
  - DIARRHOEA [None]
  - DIZZINESS [None]
  - HYPOAESTHESIA FACIAL [None]
  - NIGHT SWEATS [None]
  - SOMNOLENCE [None]
  - UTERINE SPASM [None]
  - VOMITING PROJECTILE [None]
